FAERS Safety Report 5036890-1 (Version None)
Quarter: 2006Q2

REPORT INFORMATION
  Report Type: 
  Country: None (occurrence: None)
  Receive Date: 20060622
  Receipt Date: 20060614
  Transmission Date: 20061013
  Serious: Yes (Death)
  Sender: FDA-Public Use
  Company Number: US200606003449

PATIENT
  Age: 40 Year
  Sex: Female

DRUGS (2)
  1. ZYPREXA [Suspect]
     Indication: SCHIZOAFFECTIVE DISORDER
     Dosage: 15 MG, DAILY (1/D),ORAL
     Route: 048
  2. DEPAKOTE [Concomitant]

REACTIONS (4)
  - ARRHYTHMIA [None]
  - DIABETES MELLITUS [None]
  - MYOCARDIAL INFARCTION [None]
  - WEIGHT INCREASED [None]
